FAERS Safety Report 15457966 (Version 1)
Quarter: 2018Q4

REPORT INFORMATION
  Report Type: Spontaneous
  Country: IN (occurrence: IN)
  Receive Date: 20181003
  Receipt Date: 20181003
  Transmission Date: 20190204
  Serious: Yes (Hospitalization, Other)
  Sender: FDA-Public Use
  Company Number: IN-ACCORD-072805

PATIENT
  Age: 60 Year
  Sex: Male

DRUGS (3)
  1. AZATHIOPRINE. [Suspect]
     Active Substance: AZATHIOPRINE
     Indication: RENAL TRANSPLANT
     Route: 048
  2. TACROLIMUS. [Suspect]
     Active Substance: TACROLIMUS
     Indication: RENAL TRANSPLANT
     Route: 048
  3. OZURDEX [Suspect]
     Active Substance: DEXAMETHASONE
     Indication: CATARACT SUBCAPSULAR

REACTIONS (3)
  - Retinal haemorrhage [Recovered/Resolved]
  - Cytomegalovirus chorioretinitis [Recovered/Resolved]
  - Necrotising retinitis [Recovered/Resolved]
